FAERS Safety Report 5548727-2 (Version None)
Quarter: 2007Q4

REPORT INFORMATION
  Report Type: 
  Country: None (occurrence: None)
  Receive Date: 20071206
  Receipt Date: 20071126
  Transmission Date: 20080405
  Serious: Yes (Hospitalization)
  Sender: FDA-Public Use
  Company Number: 164686ISR

PATIENT
  Age: 66 Year
  Sex: Female

DRUGS (13)
  1. FLUOROURACIL [Suspect]
     Dosage: 360 MG (400 MG/M2); 5460 MG (3000 MG/M2), INTRAVENOUS
     Route: 042
     Dates: start: 20071105
  2. FLUOROURACIL [Suspect]
     Dosage: 360 MG (400 MG/M2); 5460 MG (3000 MG/M2), INTRAVENOUS
     Route: 042
     Dates: start: 20071105
  3. CALCIUM LEVOFOLINATE [Suspect]
     Dosage: 728 MG (200 MG/M2), INTRAVENOUS
     Route: 042
     Dates: start: 20071105
  4. IRINOTECAN HCL [Suspect]
     Dosage: 327 MG (180 MG/M2), INTRAVENOUS
     Route: 042
     Dates: start: 20071105
  5. FENTANYL [Concomitant]
  6. OMEPRAZOLE [Concomitant]
  7. DOMPERIDONE [Concomitant]
  8. INSULIN HUMAN [Concomitant]
  9. ISOPHANE INSULIN [Concomitant]
  10. MELOXICAM [Concomitant]
  11. SIMVASTATIN [Concomitant]
  12. CYCLO-PROGYNOVA [Concomitant]
  13. LITHIUM CARBONATE [Concomitant]

REACTIONS (3)
  - DIABETES MELLITUS INADEQUATE CONTROL [None]
  - INFECTION [None]
  - PYREXIA [None]
